FAERS Safety Report 8488052-3 (Version None)
Quarter: 2012Q3

REPORT INFORMATION
  Report Type: 
  Country: None (occurrence: None)
  Receive Date: 20120705
  Receipt Date: 20120628
  Transmission Date: 20120928
  Serious: Yes (Hospitalization)
  Sender: FDA-Public Use
  Company Number: US-CELGENEUS-163-21880-12063776

PATIENT
  Sex: Male

DRUGS (8)
  1. REVLIMID [Suspect]
     Dosage: 2.5 MILLIGRAM
     Route: 048
     Dates: start: 20120601
  2. COMBIVENT [Concomitant]
     Route: 065
  3. VITAMIN B-12 [Concomitant]
     Route: 065
  4. REVLIMID [Suspect]
     Dosage: 5 MILLIGRAM
     Route: 048
     Dates: start: 20110714, end: 20120531
  5. SPIRIVA [Concomitant]
     Route: 065
  6. ADVAIR DISKUS 100/50 [Concomitant]
     Route: 065
  7. SIMVASTATIN [Concomitant]
     Route: 065
  8. PLAVIX [Concomitant]
     Route: 065

REACTIONS (1)
  - CAROTID ARTERY DISEASE [None]
